FAERS Safety Report 17469681 (Version 4)
Quarter: 2020Q2

REPORT INFORMATION
  Report Type: Report from Study
  Country: US (occurrence: US)
  Receive Date: 20200227
  Receipt Date: 20200521
  Transmission Date: 20200713
  Serious: Yes (Hospitalization)
  Sender: FDA-Public Use
  Company Number: US-ACTELION-A-US2016-132369

PATIENT
  Sex: Female
  Weight: 99.77 kg

DRUGS (8)
  1. OPSUMIT [Suspect]
     Active Substance: MACITENTAN
     Indication: PULMONARY ARTERIAL HYPERTENSION
     Dosage: 10 MG, QD
     Route: 048
     Dates: start: 20140623
  2. OPSUMIT [Suspect]
     Active Substance: MACITENTAN
     Dosage: UNK
     Route: 048
  3. OPSUMIT [Suspect]
     Active Substance: MACITENTAN
     Dosage: 10 MG, QD
     Route: 048
     Dates: end: 201903
  4. ADCIRCA [Suspect]
     Active Substance: TADALAFIL
     Indication: PRODUCT USED FOR UNKNOWN INDICATION
     Route: 065
  5. TYVASO [Suspect]
     Active Substance: TREPROSTINIL
     Indication: PRODUCT USED FOR UNKNOWN INDICATION
     Route: 065
  6. REMODULIN [Concomitant]
     Active Substance: TREPROSTINIL
  7. ADEMPAS [Concomitant]
     Active Substance: RIOCIGUAT
  8. LASIX [Concomitant]
     Active Substance: FUROSEMIDE
     Indication: GOUT

REACTIONS (35)
  - Nasopharyngitis [Unknown]
  - Rhinorrhoea [Unknown]
  - Swelling face [Unknown]
  - Fluid retention [Recovering/Resolving]
  - Hypothyroidism [Unknown]
  - Dyspnoea [Unknown]
  - Unevaluable event [Unknown]
  - Somnolence [Unknown]
  - Palpitations [Unknown]
  - Gait disturbance [Unknown]
  - Adverse drug reaction [Unknown]
  - Peripheral swelling [Unknown]
  - Gout [Unknown]
  - Abdominal distension [Unknown]
  - Sneezing [Unknown]
  - Myalgia [Unknown]
  - Oedema peripheral [Unknown]
  - Splenomegaly [Unknown]
  - Sinus disorder [Unknown]
  - Malaise [Unknown]
  - Nervousness [Unknown]
  - Tooth infection [Unknown]
  - Throat irritation [Unknown]
  - Headache [Unknown]
  - Dyspnoea exertional [Unknown]
  - Wound secretion [Unknown]
  - Fluid overload [Unknown]
  - Asthenia [Unknown]
  - Tooth extraction [Unknown]
  - Cough [Unknown]
  - Nasal congestion [Unknown]
  - Oropharyngeal pain [Unknown]
  - Joint swelling [Unknown]
  - Hepatic steatosis [Unknown]
  - Hepatomegaly [Unknown]
